FAERS Safety Report 21221038 (Version 3)
Quarter: 2022Q4

REPORT INFORMATION
  Report Type: Spontaneous
  Country: AT (occurrence: AT)
  Receive Date: 20220817
  Receipt Date: 20221109
  Transmission Date: 20230113
  Serious: Yes (Other)
  Sender: FDA-Public Use
  Company Number: AT-BAYER-2022A113729

PATIENT
  Age: 74 Year

DRUGS (5)
  1. EYLEA [Suspect]
     Active Substance: AFLIBERCEPT
     Indication: Product used for unknown indication
     Dosage: 1 DF, ONCE, LEFT EYE; SOLUTION FOR INJECTION
     Route: 031
     Dates: start: 20220622, end: 20220622
  2. EYLEA [Suspect]
     Active Substance: AFLIBERCEPT
     Dosage: UNK; SOLUTION FOR INJECTION
     Route: 031
  3. EYLEA [Suspect]
     Active Substance: AFLIBERCEPT
     Dosage: UNK; SOLUTION FOR INJECTION
     Route: 031
  4. EYLEA [Suspect]
     Active Substance: AFLIBERCEPT
     Dosage: UNK; SOLUTION FOR INJECTION
     Route: 031
  5. EYLEA [Suspect]
     Active Substance: AFLIBERCEPT
     Dosage: UNK; SOLUTION FOR INJECTION
     Route: 031

REACTIONS (7)
  - Blindness unilateral [Recovered/Resolved]
  - Vitreous opacities [Unknown]
  - Vitreal cells [Unknown]
  - Eye inflammation [Unknown]
  - Anterior chamber cell [Unknown]
  - Multiple use of single-use product [Unknown]
  - Intra-ocular injection complication [Unknown]
